FAERS Safety Report 20706944 (Version 1)
Quarter: 2022Q2

REPORT INFORMATION
  Report Type: Spontaneous
  Country: US (occurrence: None)
  Receive Date: 20220412
  Receipt Date: 20220412
  Transmission Date: 20220721
  Serious: No
  Sender: FDA-Public Use
  Company Number: None

PATIENT
  Age: 52 Year
  Sex: Female

DRUGS (2)
  1. CANNABIDIOL [Suspect]
     Active Substance: CANNABIDIOL
     Indication: Arthralgia
     Dosage: OTHER QUANTITY : 10 SAMPLE TINS;?
     Route: 061
     Dates: start: 20220411
  2. CANNABIDIOL [Suspect]
     Active Substance: CANNABIDIOL
     Indication: Myalgia

REACTIONS (1)
  - Product label confusion [None]

NARRATIVE: CASE EVENT DATE: 20220411
